FAERS Safety Report 21701103 (Version 1)
Quarter: 2022Q4

REPORT INFORMATION
  Report Type: Report from Study
  Country: MX (occurrence: MX)
  Receive Date: 20221208
  Receipt Date: 20221208
  Transmission Date: 20230112
  Serious: Yes (Death, Hospitalization)
  Sender: FDA-Public Use
  Company Number: MX-002147023-NVSC2022MX081010

PATIENT
  Sex: Male

DRUGS (5)
  1. ENTRESTO [Suspect]
     Active Substance: SACUBITRIL\VALSARTAN
     Indication: Cardiac failure
     Dosage: 0.5 DOSAGE FORM, QD (50 MG) (AT NIGHT)
     Route: 048
  2. ENTRESTO [Suspect]
     Active Substance: SACUBITRIL\VALSARTAN
     Dosage: 1 DOSAGE FORM, BID (IN THE MORNING AND AT NIGHT)
     Route: 048
     Dates: start: 20220607
  3. ENTRESTO [Suspect]
     Active Substance: SACUBITRIL\VALSARTAN
     Dosage: 0.5 DOSAGE FORM, BID
     Route: 048
     Dates: start: 202209
  4. ENTRESTO [Suspect]
     Active Substance: SACUBITRIL\VALSARTAN
     Dosage: UNK
     Route: 048
     Dates: end: 20221020
  5. ATORVASTATIN [Concomitant]
     Active Substance: ATORVASTATIN
     Indication: Arteriosclerosis
     Dosage: 1 DOSAGE FORM, QD (AT NIGHT) (STARTED 10 YEARS AGO)
     Route: 048

REACTIONS (7)
  - Pneumonia bacterial [Fatal]
  - Septic shock [Fatal]
  - Congestive cardiomyopathy [Fatal]
  - Renal failure [Unknown]
  - Cardiac failure [Unknown]
  - Wrong technique in product usage process [Unknown]
  - Off label use [Unknown]
